FAERS Safety Report 11474108 (Version 1)
Quarter: 2015Q3

REPORT INFORMATION
  Report Type: Spontaneous
  Country: US (occurrence: US)
  Receive Date: 20150908
  Receipt Date: 20150908
  Transmission Date: 20151125
  Serious: No
  Sender: FDA-Public Use
  Company Number: US-JAZZ-2013-US-002825

PATIENT
  Sex: Male

DRUGS (3)
  1. XYREM [Suspect]
     Active Substance: SODIUM OXYBATE
     Indication: SLEEP DISORDER
     Dosage: 2.25 G, BID
     Route: 048
     Dates: start: 20130808, end: 20131006
  2. XYREM [Suspect]
     Active Substance: SODIUM OXYBATE
     Dosage: DOSE ADJUSTMENTS
     Route: 048
     Dates: start: 20131007, end: 20131012
  3. XYREM [Suspect]
     Active Substance: SODIUM OXYBATE
     Dosage: 4.5 G, BID
     Route: 048
     Dates: start: 20131118, end: 20140522

REACTIONS (5)
  - Nightmare [Not Recovered/Not Resolved]
  - Peripheral swelling [Unknown]
  - Somnambulism [Not Recovered/Not Resolved]
  - Influenza like illness [Unknown]
  - Product use issue [Unknown]

NARRATIVE: CASE EVENT DATE: 2013
